FAERS Safety Report 7829139-5 (Version None)
Quarter: 2011Q4

REPORT INFORMATION
  Report Type: 
  Country: None (occurrence: None)
  Receive Date: 20111020
  Receipt Date: 20111012
  Transmission Date: 20120403
  Serious: Yes (Other)
  Sender: FDA-Public Use
  Company Number: PHHY2011AR90325

PATIENT
  Sex: Female

DRUGS (2)
  1. ONBREZ [Suspect]
     Indication: ASTHMA
     Dosage: 1 DF, QD
     Dates: start: 20110929
  2. ONBREZ [Suspect]
     Indication: EMPHYSEMA

REACTIONS (6)
  - HYPERSENSITIVITY [None]
  - BLISTER [None]
  - RASH [None]
  - LIP SWELLING [None]
  - SWELLING FACE [None]
  - ACNE [None]
